FAERS Safety Report 11255162 (Version 1)
Quarter: 2015Q3

REPORT INFORMATION
  Report Type: Spontaneous
  Country: US (occurrence: US)
  Receive Date: 20150709
  Receipt Date: 20150709
  Transmission Date: 20151125
  Serious: Yes (Hospitalization)
  Sender: FDA-Public Use
  Company Number: US-SA-2015SA099673

PATIENT
  Age: 63 Year
  Sex: Male

DRUGS (4)
  1. PLAVIX [Suspect]
     Active Substance: CLOPIDOGREL BISULFATE
     Route: 048
  2. XARELTO [Suspect]
     Active Substance: RIVAROXABAN
     Indication: DEEP VEIN THROMBOSIS
     Route: 048
     Dates: start: 201505, end: 201506
  3. ALBUTEROL. [Concomitant]
     Active Substance: ALBUTEROL
     Dosage: INHALATION ORAL
  4. ADVAIR HFA [Concomitant]
     Active Substance: FLUTICASONE PROPIONATE\SALMETEROL XINAFOATE
     Dosage: ROUTE: INHALATION ORAL

REACTIONS (2)
  - Gastrointestinal haemorrhage [Unknown]
  - Constipation [Unknown]

NARRATIVE: CASE EVENT DATE: 201506
